FAERS Safety Report 8268414-X (Version None)
Quarter: 2012Q2

REPORT INFORMATION
  Report Type: 
  Country: None (occurrence: None)
  Receive Date: 20120409
  Receipt Date: 20120329
  Transmission Date: 20120825
  Serious: Yes (Other)
  Sender: FDA-Public Use
  Company Number: US-ASTRAZENECA-2012SE07140

PATIENT
  Age: 48 Year
  Sex: Male

DRUGS (2)
  1. LIPITOR [Suspect]
     Route: 065
  2. CRESTOR [Suspect]
     Route: 048

REACTIONS (8)
  - THYROID DISORDER [None]
  - ADVERSE EVENT [None]
  - CORONARY ARTERY OCCLUSION [None]
  - CARDIAC PROCEDURE COMPLICATION [None]
  - BIPOLAR DISORDER [None]
  - ADVERSE DRUG REACTION [None]
  - MYOCARDIAL INFARCTION [None]
  - SLEEP APNOEA SYNDROME [None]
